FAERS Safety Report 13694290 (Version 1)
Quarter: 2017Q2

REPORT INFORMATION
  Report Type: Spontaneous
  Country: BE (occurrence: BE)
  Receive Date: 20170627
  Receipt Date: 20170627
  Transmission Date: 20170830
  Serious: Yes (Hospitalization, Other)
  Sender: FDA-Public Use
  Company Number: BE-BAYER-2017-116755

PATIENT
  Age: 41 Year
  Sex: Female
  Weight: 53 kg

DRUGS (1)
  1. MIRENA [Suspect]
     Active Substance: LEVONORGESTREL
     Indication: CONTRACEPTION
     Dosage: 20 MCG/24HR, CONT
     Route: 015
     Dates: start: 2002, end: 2017

REACTIONS (14)
  - Anger [None]
  - Depression [None]
  - Alopecia [None]
  - Abdominal pain upper [None]
  - Dyspareunia [None]
  - Arthralgia [None]
  - Burnout syndrome [None]
  - Headache [None]
  - Fatigue [None]
  - Sleep disorder [None]
  - Vertigo [None]
  - Coital bleeding [None]
  - Anxiety [None]
  - Negative thoughts [None]

NARRATIVE: CASE EVENT DATE: 2008
